FAERS Safety Report 15430683 (Version 2)
Quarter: 2018Q3

REPORT INFORMATION
  Report Type: Spontaneous
  Country: AU (occurrence: AU)
  Receive Date: 20180926
  Receipt Date: 20180928
  Transmission Date: 20181010
  Serious: Yes (Hospitalization, Other)
  Sender: FDA-Public Use
  Company Number: AU-PFIZER INC-2018381092

PATIENT
  Sex: Male

DRUGS (13)
  1. IMMUNE GLOBULIN [Concomitant]
     Active Substance: HUMAN IMMUNOGLOBULIN G
     Dosage: UNK
  2. HYDROZOLE [Concomitant]
     Active Substance: CLOTRIMAZOLE\HYDROCORTISONE
     Dosage: UNK
  3. XOLAIR [Concomitant]
     Active Substance: OMALIZUMAB
     Dosage: UNK
  4. AUGMENTIN DUO [Concomitant]
     Active Substance: AMOXICILLIN\CLAVULANATE POTASSIUM
     Dosage: UNK
  5. ERYTHROMYCIN. [Concomitant]
     Active Substance: ERYTHROMYCIN
     Dosage: 400 MG, UNK
     Route: 048
  6. NORFLOXACIN [Concomitant]
     Active Substance: NORFLOXACIN
     Dosage: UNK
  7. PLAQUENIL S [Concomitant]
     Active Substance: HYDROXYCHLOROQUINE SULFATE
     Dosage: UNK
  8. PROPECIA [Concomitant]
     Active Substance: FINASTERIDE
     Dosage: UNK
  9. DAKTARIN [MICONAZOLE] [Concomitant]
     Dosage: UNK
  10. EPIDUO FORTE [Concomitant]
     Active Substance: ADAPALENE\BENZOYL PEROXIDE
     Dosage: UNK
  11. GENTAMICIN SULFATE. [Suspect]
     Active Substance: GENTAMICIN SULFATE
     Dosage: UNK
     Route: 055
  12. LOCACORTEN VIOFORM [Concomitant]
     Dosage: UNK
  13. BACTRIM [Concomitant]
     Active Substance: SULFAMETHOXAZOLE\TRIMETHOPRIM
     Dosage: UNK

REACTIONS (15)
  - Urticaria [Unknown]
  - Respiratory tract infection [Unknown]
  - Diverticulitis [Unknown]
  - Rash generalised [Unknown]
  - Alopecia [Unknown]
  - Overdose [Unknown]
  - Erectile dysfunction [Unknown]
  - Weight decreased [Unknown]
  - Diarrhoea [Unknown]
  - Depression [Unknown]
  - Infertility male [Unknown]
  - Hypotonia [Unknown]
  - Asthenia [Unknown]
  - Hepatic mass [Unknown]
  - Incorrect route of drug administration [Unknown]
